FAERS Safety Report 7924707-4 (Version None)
Quarter: 2011Q4

REPORT INFORMATION
  Report Type: 
  Country: None (occurrence: None)
  Receive Date: 20111118
  Receipt Date: 20110325
  Transmission Date: 20120403
  Serious: No
  Sender: FDA-Public Use
  Company Number: US-AMGEN-USASP2011016462

PATIENT
  Age: 41 Year
  Sex: Male
  Weight: 134.69 kg

DRUGS (8)
  1. FOLIC ACID [Concomitant]
     Dosage: 20 MG, UNK
  2. METHOTREXATE [Concomitant]
     Dosage: 2.5 MG, UNK
  3. LISINOPRIL [Concomitant]
     Dosage: 20 MG, UNK
  4. ENBREL [Suspect]
     Indication: PRODUCT USED FOR UNKNOWN INDICATION
     Dosage: 50 MG, QWK
  5. PREDNISONE TAB [Concomitant]
     Dosage: 1 MG, UNK
  6. VERAPAMIL [Concomitant]
     Dosage: 180 MG, UNK
  7. LIPITOR [Concomitant]
     Dosage: 20 UNK, UNK
  8. HYDROCHLOROTHIAZIDE [Concomitant]
     Dosage: 12.5 MG, UNK

REACTIONS (2)
  - FATIGUE [None]
  - SOMNOLENCE [None]
